FAERS Safety Report 5217137-X (Version None)
Quarter: 2007Q1

REPORT INFORMATION
  Report Type: 
  Country: None (occurrence: None)
  Receive Date: 20070124
  Receipt Date: 20070116
  Transmission Date: 20070707
  Serious: Yes (Hospitalization)
  Sender: FDA-Public Use
  Company Number: 467212

PATIENT
  Age: 62 Year
  Sex: Male

DRUGS (1)
  1. ARTIST [Suspect]
     Indication: ANGINA PECTORIS
     Dosage: 2.5MG PER DAY
     Route: 048
     Dates: start: 20060628, end: 20061004

REACTIONS (4)
  - FAECES DISCOLOURED [None]
  - JAUNDICE [None]
  - LIVER DISORDER [None]
  - OCULAR ICTERUS [None]
